FAERS Safety Report 6208329-1 (Version None)
Quarter: 2009Q2

REPORT INFORMATION
  Report Type: 
  Country: None (occurrence: None)
  Receive Date: 20090529
  Receipt Date: 20090520
  Transmission Date: 20091009
  Serious: Yes (Other)
  Sender: FDA-Public Use
  Company Number: US-ELI_LILLY_AND_COMPANY-US200905004653

PATIENT
  Sex: Female

DRUGS (2)
  1. ALIMTA [Suspect]
     Indication: OVARIAN CANCER
     Dosage: 900 MG/M2, OTHER
     Dates: start: 20090401, end: 20090101
  2. ALIMTA [Suspect]
     Dosage: 500 MG/M2, UNK
     Dates: start: 20090501, end: 20090501

REACTIONS (1)
  - PANCREATITIS [None]
